FAERS Safety Report 4372064-5 (Version None)
Quarter: 2004Q2

REPORT INFORMATION
  Report Type: 
  Country: None (occurrence: None)
  Receive Date: 20040602
  Receipt Date: 20040519
  Transmission Date: 20050107
  Serious: No
  Sender: FDA-Public Use
  Company Number: 2004-BP-01245NB

PATIENT
  Age: 71 Year
  Sex: Male

DRUGS (5)
  1. MICARDIS [Suspect]
     Indication: HYPERTENSION
     Dosage: 20 MG (20 MG)
     Route: 048
     Dates: start: 20040105, end: 20040120
  2. URSO [Concomitant]
  3. LIVACT [Concomitant]
  4. PORTOLAC (LACTITOL) [Concomitant]
  5. ALDACTONE A [Concomitant]

REACTIONS (3)
  - BLOOD CREATINE PHOSPHOKINASE INCREASED [None]
  - MUSCLE CRAMP [None]
  - MYALGIA [None]
